FAERS Safety Report 20662251 (Version 8)
Quarter: 2022Q4

REPORT INFORMATION
  Report Type: Report from Study
  Country: DE (occurrence: None)
  Receive Date: 20220401
  Receipt Date: 20221215
  Transmission Date: 20230112
  Serious: Yes (Hospitalization, Other)
  Sender: FDA-Public Use
  Company Number: DE-ROCHE-3059144

PATIENT
  Age: 52 Year
  Sex: Female
  Weight: 92 kg

DRUGS (17)
  1. ATEZOLIZUMAB [Suspect]
     Active Substance: ATEZOLIZUMAB
     Indication: Triple negative breast cancer
     Dosage: DATE OF LAST DOSE PRIOR TO SAE: 03/FEB/2022 + 17/MAR/2022
     Route: 041
     Dates: start: 20211230
  2. PACLITAXEL [Suspect]
     Active Substance: PACLITAXEL
     Indication: Triple negative breast cancer
     Dosage: DATE OF LAST DOSE PRIOR TO SAE: 17/FEB/2022 + 17/MAR/2022, 22/MAR/2022,24/MAR/2022.
     Route: 042
     Dates: start: 20220113
  3. CARBOPLATIN [Suspect]
     Active Substance: CARBOPLATIN
     Indication: Triple negative breast cancer
     Dosage: DATE OF LAST DOSE PRIOR TO SAE: 17/FEB/2022, 24/MAR/2022
     Route: 042
     Dates: start: 20220113
  4. LEVOTHYROXINE SODIUM [Concomitant]
     Active Substance: LEVOTHYROXINE SODIUM
     Dates: start: 2009, end: 20220317
  5. LEVOTHYROXINE SODIUM [Concomitant]
     Active Substance: LEVOTHYROXINE SODIUM
     Dates: start: 20220317, end: 20220329
  6. LEVOTHYROXINE SODIUM [Concomitant]
     Active Substance: LEVOTHYROXINE SODIUM
     Dates: start: 20220315, end: 20220329
  7. CALCIUM [Concomitant]
     Active Substance: CALCIUM
     Dates: start: 2009
  8. LOPERAMIDE [Concomitant]
     Active Substance: LOPERAMIDE
     Dates: start: 20220122, end: 20220204
  9. DEXAMETHASONE [Concomitant]
     Active Substance: DEXAMETHASONE
     Dates: start: 20220113
  10. DIMETHINDENE MALEATE [Concomitant]
     Active Substance: DIMETHINDENE MALEATE
     Dates: start: 20220113
  11. MCP [Concomitant]
     Active Substance: METOCLOPRAMIDE HYDROCHLORIDE
     Dates: start: 20220217, end: 20220404
  12. OLANZAPINE [Concomitant]
     Active Substance: OLANZAPINE
     Dates: start: 20220217
  13. ERYTHROCYTES, CONCENTRATED [Concomitant]
     Dosage: 2 PCKS ONCE
     Dates: start: 20220225, end: 20220225
  14. AMOXICILLIN\CLAVULANIC ACID [Concomitant]
     Active Substance: AMOXICILLIN\CLAVULANIC ACID
     Dosage: 875/125 MG THREE TIMES DAILY
     Dates: start: 20220309, end: 20220315
  15. AKYNZEO [Concomitant]
     Dosage: 300/0.5 MG WEEKLY
     Dates: start: 20220317, end: 20220615
  16. ENOXAPARIN SODIUM [Concomitant]
     Active Substance: ENOXAPARIN SODIUM
     Dosage: 0.4 ML ONCE DAILY
     Dates: start: 20220317, end: 20220321
  17. CIPROFLOXACIN [Concomitant]
     Active Substance: CIPROFLOXACIN
     Dates: start: 20220228, end: 20220303

REACTIONS (4)
  - Febrile neutropenia [Recovered/Resolved]
  - Pyrexia [Recovered/Resolved]
  - General physical health deterioration [Recovered/Resolved]
  - Decreased appetite [Recovered/Resolved]

NARRATIVE: CASE EVENT DATE: 20220223
